FAERS Safety Report 4448237-X (Version None)
Quarter: 2004Q3

REPORT INFORMATION
  Report Type: 
  Country: None (occurrence: None)
  Receive Date: 20040910
  Receipt Date: 20040827
  Transmission Date: 20050211
  Serious: Yes (Hospitalization)
  Sender: FDA-Public Use
  Company Number: 200410035BBE

PATIENT
  Age: 37 Year
  Sex: Female

DRUGS (1)
  1. BAYRHO-D [Suspect]
     Dosage: 300 UG, NI, INTRAMUSCULAR
     Route: 030
     Dates: start: 20040211

REACTIONS (5)
  - ABDOMINAL PAIN UPPER [None]
  - DIARRHOEA [None]
  - DRUG EXPOSURE DURING PREGNANCY [None]
  - NAUSEA [None]
  - VOMITING [None]
